FAERS Safety Report 20263894 (Version 1)
Quarter: 2021Q4

REPORT INFORMATION
  Report Type: Spontaneous
  Country: US (occurrence: None)
  Receive Date: 20211230
  Receipt Date: 20211230
  Transmission Date: 20220303
  Serious: Yes (Disabling)
  Sender: FDA-Public Use
  Company Number: None

PATIENT
  Age: 45 Year
  Sex: Female

DRUGS (1)
  1. XIIDRA [Suspect]
     Active Substance: LIFITEGRAST
     Indication: Sjogren^s syndrome
     Dosage: OTHER QUANTITY : 1 DROP(S);?FREQUENCY : TWICE A DAY;?
     Route: 047
     Dates: start: 20210430, end: 20211221

REACTIONS (5)
  - Eye inflammation [None]
  - Eye irritation [None]
  - Blood pressure increased [None]
  - Heart rate increased [None]
  - Electrocardiogram abnormal [None]

NARRATIVE: CASE EVENT DATE: 20210722
